FAERS Safety Report 5671079-4 (Version None)
Quarter: 2008Q1

REPORT INFORMATION
  Report Type: 
  Country: None (occurrence: None)
  Receive Date: 20080313
  Receipt Date: 20080229
  Transmission Date: 20080703
  Serious: Yes (Hospitalization)
  Sender: FDA-Public Use
  Company Number: US022861

PATIENT
  Age: 41 Year
  Sex: Female
  Weight: 44.4525 kg

DRUGS (12)
  1. PROVIGIL [Suspect]
     Indication: NARCOLEPSY
     Dosage: 600 MG QD ORAL
     Route: 048
     Dates: start: 19970101, end: 20050506
  2. PROVIGIL [Suspect]
     Indication: NARCOLEPSY
     Dosage: 600 MG QD ORAL
     Route: 048
     Dates: start: 20050601, end: 20071211
  3. PROVIGIL [Suspect]
     Indication: NARCOLEPSY
     Dosage: 600 MG QD ORAL
     Route: 048
     Dates: start: 20080101
  4. DAYTRANA [Concomitant]
  5. CELEXA [Concomitant]
  6. SYNTHROID [Concomitant]
  7. ASPIRIN [Concomitant]
  8. RITALIN [Concomitant]
  9. OMEPRAZOLE [Concomitant]
  10. PLAVIX [Concomitant]
  11. DEPAKOTE [Concomitant]
  12. M.V.I. [Concomitant]

REACTIONS (2)
  - ANEURYSM RUPTURED [None]
  - RETINAL ANEURYSM [None]
